FAERS Safety Report 5098908-X (Version None)
Quarter: 2006Q3

REPORT INFORMATION
  Report Type: 
  Country: None (occurrence: None)
  Receive Date: 20060905
  Receipt Date: 20060818
  Transmission Date: 20061208
  Serious: Yes (Congenital Anomaly)
  Sender: FDA-Public Use
  Company Number: 8018471

PATIENT

DRUGS (2)
  1. KEPPRA [Suspect]
     Indication: EPILEPSY
     Dosage: 1000 MG TRP
     Route: 064
     Dates: start: 20051201, end: 20060605
  2. KEPPRA [Suspect]
     Indication: EPILEPSY
     Dosage: 1250 MG TRP
     Route: 064
     Dates: start: 20060606

REACTIONS (3)
  - DRUG EXPOSURE DURING PREGNANCY [None]
  - HEADACHE [None]
  - PREGNANCY [None]
